FAERS Safety Report 19728399 (Version 1)
Quarter: 2021Q3

REPORT INFORMATION
  Report Type: Spontaneous
  Country: US (occurrence: US)
  Receive Date: 20210820
  Receipt Date: 20210820
  Transmission Date: 20211014
  Serious: No
  Sender: FDA-Public Use
  Company Number: US-CELGENEUS-USA-20210802986

PATIENT
  Age: 49 Year
  Sex: Female

DRUGS (1)
  1. ZEPOSIA [Suspect]
     Active Substance: OZANIMOD HYDROCHLORIDE
     Indication: MULTIPLE SCLEROSIS
     Dosage: 0.92MG
     Route: 048
     Dates: start: 20210718

REACTIONS (6)
  - Cough [Recovering/Resolving]
  - Blood pressure decreased [Recovering/Resolving]
  - Peripheral swelling [Recovering/Resolving]
  - Dysuria [Recovering/Resolving]
  - Joint stiffness [Recovering/Resolving]
  - Pollakiuria [Recovering/Resolving]

NARRATIVE: CASE EVENT DATE: 20210719
